FAERS Safety Report 5863010-3 (Version None)
Quarter: 2008Q3

REPORT INFORMATION
  Report Type: 
  Country: None (occurrence: None)
  Receive Date: 20080828
  Receipt Date: 20080822
  Transmission Date: 20090109
  Serious: Yes (Other)
  Sender: FDA-Public Use
  Company Number: DE-ABBOTT-08P-062-0463370-00

PATIENT
  Age: 20 Year
  Sex: Female

DRUGS (1)
  1. ERGENYL CHRONO TABLET PR [Suspect]
     Indication: EPILEPSY
     Route: 048
     Dates: start: 20050101

REACTIONS (5)
  - BRAIN SCAN ABNORMAL [None]
  - DYSARTHRIA [None]
  - ENCEPHALITIS [None]
  - LYME DISEASE [None]
  - PSYCHOMOTOR SKILLS IMPAIRED [None]
